FAERS Safety Report 11150054 (Version 1)
Quarter: 2015Q2

REPORT INFORMATION
  Report Type: Spontaneous
  Country: US (occurrence: US)
  Receive Date: 20150529
  Receipt Date: 20150529
  Transmission Date: 20150821
  Serious: No
  Sender: FDA-Public Use
  Company Number: US-PFIZER INC-2015174800

PATIENT
  Age: 47 Year
  Sex: Female
  Weight: 49 kg

DRUGS (4)
  1. TRAMADOL [Concomitant]
     Active Substance: TRAMADOL
     Indication: PAIN
     Dosage: 50 MG, 4X/DAY
     Route: 048
  2. GABAPENTIN. [Suspect]
     Active Substance: GABAPENTIN
     Indication: OCCIPITAL NEURALGIA
     Dosage: 3000 MG, DAILY (600MG IN THE MORNING, 600MG IN THE AFTERNOON, AND 1800MG AT NIGHT)
     Route: 048
     Dates: start: 2014, end: 20150401
  3. BACLOFEN. [Concomitant]
     Active Substance: BACLOFEN
     Indication: MUSCLE SPASMS
     Dosage: 20 MG, 3X/DAY
     Route: 048
  4. BOTOX [Concomitant]
     Active Substance: ONABOTULINUMTOXINA
     Indication: PAIN

REACTIONS (8)
  - Drug ineffective [Not Recovered/Not Resolved]
  - Feeling abnormal [Recovered/Resolved]
  - Dysarthria [Recovered/Resolved]
  - Mental disorder [Recovered/Resolved]
  - Somnolence [Recovered/Resolved]
  - Hypersomnia [Recovered/Resolved]
  - Disturbance in attention [Recovered/Resolved]
  - Disorientation [Recovered/Resolved]

NARRATIVE: CASE EVENT DATE: 2014
